FAERS Safety Report 9221619 (Version 1)
Quarter: 2013Q1

REPORT INFORMATION
  Report Type: Spontaneous
  Country: US (occurrence: None)
  Receive Date: 20120831
  Receipt Date: 20120831
  Transmission Date: 20140127
  Serious: No
  Sender: FDA-Public Use
  Company Number: 1000036750

PATIENT
  Age: 64 Year
  Sex: Female

DRUGS (6)
  1. DALIRESP [Suspect]
     Indication: CHRONIC OBSTRUCTIVE PULMONARY DISEASE
     Route: 048
     Dates: start: 20120614, end: 20120619
  2. SINGULAIR [Concomitant]
  3. OMEPRAZOLE (OMEPRAZOLE) (OMEPRAZOLE) [Concomitant]
  4. CITRACAL (CALCIUM CITRATE) (CALCIUM CITRATE) [Concomitant]
  5. FISH OIL (FISH OIL) [Concomitant]
  6. CLONAZEPAM (CLONAZEPAM) (CLONAZEPAM) [Concomitant]

REACTIONS (6)
  - Headache [None]
  - Head discomfort [None]
  - Fatigue [None]
  - Pain in extremity [None]
  - Insomnia [None]
  - Increased upper airway secretion [None]
